FAERS Safety Report 7559593-8 (Version None)
Quarter: 2011Q2

REPORT INFORMATION
  Report Type: 
  Country: None (occurrence: None)
  Receive Date: 20110621
  Receipt Date: 20110614
  Transmission Date: 20111010
  Serious: Yes (Hospitalization)
  Sender: FDA-Public Use
  Company Number: AT-PFIZER INC-2011125172

PATIENT
  Age: 29 Year
  Sex: Male
  Weight: 67 kg

DRUGS (9)
  1. SERTRALINE HYDROCHLORIDE [Suspect]
     Dosage: 100 MG, UNK
     Dates: start: 20110330, end: 20110401
  2. SERTRALINE HYDROCHLORIDE [Suspect]
     Dosage: 150 MG, UNK
     Dates: start: 20110314, end: 20110321
  3. SERTRALINE HYDROCHLORIDE [Suspect]
     Dosage: 150 MG, UNK
     Dates: start: 20110328, end: 20110329
  4. SEROQUEL [Concomitant]
     Dosage: 75 MG, UNK
     Dates: start: 20110309
  5. PANTOPRAZOLE SODIUM [Suspect]
     Dosage: 20 MG, UNK
     Route: 048
     Dates: start: 20110227, end: 20110401
  6. TRAZODONE HCL [Concomitant]
     Dosage: 150 MG, UNK
     Dates: start: 20110226, end: 20110405
  7. SERTRALINE HYDROCHLORIDE [Suspect]
     Dosage: 100 MG, UNK
     Dates: start: 20110322, end: 20110327
  8. SERTRALINE HYDROCHLORIDE [Suspect]
     Dosage: 50 MG, UNK
     Dates: start: 20110219, end: 20110307
  9. SERTRALINE HYDROCHLORIDE [Suspect]
     Dosage: 100 MG, UNK
     Dates: start: 20110308, end: 20110313

REACTIONS (1)
  - DIARRHOEA [None]
